FAERS Safety Report 4317069-5 (Version None)
Quarter: 2004Q1

REPORT INFORMATION
  Report Type: 
  Country: None (occurrence: None)
  Receive Date: 20040312
  Receipt Date: 20040224
  Transmission Date: 20041129
  Serious: Yes (Hospitalization)
  Sender: FDA-Public Use
  Company Number: L04-USA-00871-01

PATIENT
  Age: 10 Month
  Sex: Female

DRUGS (1)
  1. CELEXA [Suspect]

REACTIONS (4)
  - ACCIDENTAL EXPOSURE [None]
  - GRAND MAL CONVULSION [None]
  - OVERDOSE [None]
  - THERAPEUTIC AGENT TOXICITY [None]
